FAERS Safety Report 17010278 (Version 2)
Quarter: 2019Q4

REPORT INFORMATION
  Report Type: Spontaneous
  Country: US (occurrence: US)
  Receive Date: 20191108
  Receipt Date: 20191202
  Transmission Date: 20200122
  Serious: No
  Sender: FDA-Public Use
  Company Number: US-PFIZER INC-2019483129

PATIENT
  Age: 94 Year
  Sex: Male
  Weight: 89.8 kg

DRUGS (17)
  1. VYNDAQEL [Suspect]
     Active Substance: TAFAMIDIS MEGLUMINE
     Indication: CARDIOMYOPATHY
     Dosage: 20 MG, DAILY (4-20 MG EACH DAY/TAKE 4 CAPSULES BY MOUTH ONCE DAILY)
     Route: 048
     Dates: start: 20190901
  2. COUMADIN [Interacting]
     Active Substance: WARFARIN SODIUM
     Dosage: 2 MG, UNK
  3. FLOMAX [Concomitant]
     Active Substance: TAMSULOSIN HYDROCHLORIDE
     Dosage: 0.8 MG, 1X/DAY (TAKE 2 CAPSULES BY MOUTH DAILY AT BEDTIME)
     Route: 048
  4. LIPITOR [Concomitant]
     Active Substance: ATORVASTATIN CALCIUM
     Dosage: 0.5 MG, 1X/DAY
     Route: 048
  5. AMOXIL [Concomitant]
     Active Substance: AMOXICILLIN
     Dosage: UNK (TAKE FOUR CAPSULES MOUTH 1 HOUR BEFORE APPOINTMENT)
     Route: 048
  6. TYLENOL [Concomitant]
     Active Substance: ACETAMINOPHEN
     Indication: PAIN
     Dosage: 650 MG, AS NEEDED (TAKE 2 TABLETS BY MOUTH EVERY 4 HOURS AS NEEDED/MAXIMUM ACETAMINOPHEN DOSE IN ALL
     Route: 048
  7. LASIX [Concomitant]
     Active Substance: FUROSEMIDE
     Dosage: 20 MG, 1X/DAY
     Route: 048
  8. DEFINITY [Concomitant]
     Active Substance: PERFLUTREN
     Dosage: 1.3 ML, UNK (INJECT 1.3 ML INTRAVENOUSLY AS DIRECTED)
     Route: 042
  9. COUMADIN [Interacting]
     Active Substance: WARFARIN SODIUM
     Dosage: 3 MG, UNK (4 MG M, W, FR; 3 MG OTHER 3/CURRENT DOSE IS 4 MG MWF AND 3 MG ALL OTHER DAYS)
  10. PROSCAR [Concomitant]
     Active Substance: FINASTERIDE
     Dosage: 5 MG, 1X/DAY
     Route: 048
  11. THEREMS M [Concomitant]
     Dosage: UNK, 1X/DAY
     Route: 048
  12. COUMADIN [Interacting]
     Active Substance: WARFARIN SODIUM
     Dosage: 4 MG, UNK (4 MG M, W, FR; 3 MG OTHER 3/CURRENT DOSE IS 4 MG MWF AND 3 MG ALL OTHER DAYS)
  13. NITROQUICK [Concomitant]
     Active Substance: NITROGLYCERIN
     Indication: CHEST PAIN
     Dosage: 0.4 MG, AS NEEDED (DISSOLVE 1 TABLET UNDER THE TONGUE EVERY 5 MINUTES AS NEEDED )
     Route: 060
  14. NORVASC [Concomitant]
     Active Substance: AMLODIPINE BESYLATE
     Dosage: 5 MG, 1X/DAY
     Route: 048
  15. POLYETHYLENE GLYCOL 3350. [Concomitant]
     Active Substance: POLYETHYLENE GLYCOL 3350
     Dosage: 17 G, 1X/DAY (TAKE 17 G BY MOUTH ONCE DAILY)
     Route: 048
  16. VITAMIN D3 [Concomitant]
     Active Substance: CHOLECALCIFEROL
     Dosage: 1000 IU, 1X/DAY
     Route: 048
  17. VITAMIN C [Concomitant]
     Active Substance: ASCORBIC ACID
     Dosage: 500 MG, 1X/DAY
     Route: 048

REACTIONS (3)
  - Hypoacusis [Unknown]
  - Drug interaction [Recovered/Resolved]
  - International normalised ratio decreased [Recovered/Resolved]

NARRATIVE: CASE EVENT DATE: 20190901
